FAERS Safety Report 9970339 (Version 1)
Quarter: 2014Q1

REPORT INFORMATION
  Report Type: Spontaneous
  Country: US (occurrence: None)
  Receive Date: 20140304
  Receipt Date: 20140304
  Transmission Date: 20141002
  Serious: Yes (Death, Other)
  Sender: FDA-Public Use
  Company Number: SYM-2013-12345

PATIENT
  Age: 66 Year
  Sex: Male

DRUGS (2)
  1. XENAZINE (TETRABENAZINE) (12.5 MILLIGRAM, TABLET) (TETRABENAZINE) [Suspect]
     Indication: HUNTINGTON^S DISEASE
     Dosage: 2.5 DOSAGE FORMS, 2 IN 1 D, ORAL
     Route: 048
     Dates: start: 20121012
  2. PAROXETINE (PAROXETINE) (20 MILLIGRAM) (PAROXETINE) [Suspect]
     Indication: PRODUCT USED FOR UNKNOWN INDICATION
     Dates: start: 201308

REACTIONS (2)
  - Urinary tract infection [None]
  - Drooling [None]
